FAERS Safety Report 23440438 (Version 1)
Quarter: 2024Q1

REPORT INFORMATION
  Report Type: Spontaneous
  Country: US (occurrence: US)
  Receive Date: 20240124
  Receipt Date: 20240124
  Transmission Date: 20240410
  Serious: No
  Sender: FDA-Public Use
  Company Number: US-STRIDES ARCOLAB LIMITED-2023SP012089

PATIENT
  Age: 8 Decade
  Sex: Male

DRUGS (34)
  1. DOXYCYCLINE [Suspect]
     Active Substance: DOXYCYCLINE
     Indication: Skin toxicity
     Dosage: UNK
     Route: 065
  2. DOXYCYCLINE [Suspect]
     Active Substance: DOXYCYCLINE
     Indication: Ecchymosis
  3. DOXYCYCLINE [Suspect]
     Active Substance: DOXYCYCLINE
     Indication: Rash pustular
  4. DOXYCYCLINE [Suspect]
     Active Substance: DOXYCYCLINE
     Indication: Eczema
  5. DOXYCYCLINE [Suspect]
     Active Substance: DOXYCYCLINE
     Indication: Staphylococcal skin infection
  6. DOXYCYCLINE [Suspect]
     Active Substance: DOXYCYCLINE
     Indication: Erythema
  7. DOXYCYCLINE [Suspect]
     Active Substance: DOXYCYCLINE
     Indication: Pruritus
  8. DOXYCYCLINE [Suspect]
     Active Substance: DOXYCYCLINE
     Indication: Photosensitivity reaction
  9. ERYTHROMYCIN [Suspect]
     Active Substance: ERYTHROMYCIN
     Indication: Skin toxicity
     Dosage: UNK
     Route: 065
  10. ERYTHROMYCIN [Suspect]
     Active Substance: ERYTHROMYCIN
     Indication: Ecchymosis
  11. ERYTHROMYCIN [Suspect]
     Active Substance: ERYTHROMYCIN
     Indication: Rash pustular
  12. ERYTHROMYCIN [Suspect]
     Active Substance: ERYTHROMYCIN
     Indication: Eczema
  13. ERYTHROMYCIN [Suspect]
     Active Substance: ERYTHROMYCIN
     Indication: Staphylococcal skin infection
  14. ERYTHROMYCIN [Suspect]
     Active Substance: ERYTHROMYCIN
     Indication: Erythema
  15. ERYTHROMYCIN [Suspect]
     Active Substance: ERYTHROMYCIN
     Indication: Pruritus
  16. ERYTHROMYCIN [Suspect]
     Active Substance: ERYTHROMYCIN
     Indication: Photosensitivity reaction
  17. IBRUTINIB [Concomitant]
     Active Substance: IBRUTINIB
     Indication: Mantle cell lymphoma
     Dosage: UNK
     Route: 048
  18. FUROSEMIDE [Concomitant]
     Active Substance: FUROSEMIDE
     Indication: Product used for unknown indication
     Dosage: UNK
     Route: 065
  19. DESONIDE [Concomitant]
     Active Substance: DESONIDE
     Indication: Skin toxicity
     Dosage: UNK
     Route: 065
  20. DESONIDE [Concomitant]
     Active Substance: DESONIDE
     Indication: Ecchymosis
  21. DESONIDE [Concomitant]
     Active Substance: DESONIDE
     Indication: Rash pustular
  22. DESONIDE [Concomitant]
     Active Substance: DESONIDE
     Indication: Pruritus
  23. DESONIDE [Concomitant]
     Active Substance: DESONIDE
     Indication: Eczema
  24. DESONIDE [Concomitant]
     Active Substance: DESONIDE
     Indication: Photosensitivity reaction
  25. DESONIDE [Concomitant]
     Active Substance: DESONIDE
     Indication: Staphylococcal skin infection
  26. DESONIDE [Concomitant]
     Active Substance: DESONIDE
     Indication: Erythema
  27. MUPIROCIN [Concomitant]
     Active Substance: MUPIROCIN
     Indication: Skin toxicity
     Dosage: UNK
     Route: 065
  28. MUPIROCIN [Concomitant]
     Active Substance: MUPIROCIN
     Indication: Rash pustular
  29. MUPIROCIN [Concomitant]
     Active Substance: MUPIROCIN
     Indication: Rash pruritic
  30. MUPIROCIN [Concomitant]
     Active Substance: MUPIROCIN
     Indication: Erythema
  31. MUPIROCIN [Concomitant]
     Active Substance: MUPIROCIN
     Indication: Ecchymosis
  32. MUPIROCIN [Concomitant]
     Active Substance: MUPIROCIN
     Indication: Eczema
  33. MUPIROCIN [Concomitant]
     Active Substance: MUPIROCIN
     Indication: Photosensitivity reaction
  34. MUPIROCIN [Concomitant]
     Active Substance: MUPIROCIN
     Indication: Staphylococcal skin infection

REACTIONS (1)
  - Off label use [Unknown]
